FAERS Safety Report 18786463 (Version 1)
Quarter: 2021Q1

REPORT INFORMATION
  Report Type: Spontaneous
  Country: US (occurrence: US)
  Receive Date: 20210126
  Receipt Date: 20210126
  Transmission Date: 20210419
  Serious: No
  Sender: FDA-Public Use
  Company Number: US-HORIZON-2021HZN00547

PATIENT
  Age: 16 Year
  Sex: Male

DRUGS (1)
  1. RAVICTI [Suspect]
     Active Substance: GLYCEROL PHENYLBUTYRATE
     Indication: UREA CYCLE DISORDER
     Dosage: 4.5ML ORAL THREE TIMES A DAY ; TIME INTERVAL: 0.33 D
     Route: 050
     Dates: start: 20190718

REACTIONS (3)
  - Flatulence [Unknown]
  - Irritability [Unknown]
  - Agitation [Unknown]
